FAERS Safety Report 4458139-0 (Version None)
Quarter: 2004Q3

REPORT INFORMATION
  Report Type: 
  Country: None (occurrence: None)
  Receive Date: 20040924
  Receipt Date: 20040913
  Transmission Date: 20050211
  Serious: Yes (Hospitalization, Other)
  Sender: FDA-Public Use
  Company Number: ES-GLAXOSMITHKLINE-B0345594A

PATIENT
  Age: 66 Year
  Sex: Male
  Weight: 103 kg

DRUGS (3)
  1. ZYNTABAC [Suspect]
     Dosage: 300MG PER DAY
     Route: 048
     Dates: start: 20040615, end: 20040709
  2. VIOXX [Concomitant]
     Dosage: 25MG PER DAY
  3. ATROVENT [Concomitant]

REACTIONS (2)
  - ELECTROCARDIOGRAM QRS COMPLEX SHORTENED [None]
  - TACHYCARDIA [None]
